FAERS Safety Report 5752297-3 (Version None)
Quarter: 2008Q2

REPORT INFORMATION
  Report Type: 
  Country: None (occurrence: None)
  Receive Date: 20080529
  Receipt Date: 20080519
  Transmission Date: 20081010
  Serious: Yes (Life-Threatening, Hospitalization)
  Sender: FDA-Public Use
  Company Number: US-BAXTER-2008BH005168

PATIENT
  Age: 48 Year
  Sex: Female
  Weight: 92 kg

DRUGS (3)
  1. FAMOTIDINE (UNPRESERVED) [Suspect]
     Indication: ABDOMINAL PAIN UPPER
     Dosage: DOSE UNIT:UNKNOWN
     Route: 042
     Dates: start: 20080425, end: 20080425
  2. EPINEPHRINE [Suspect]
     Indication: ANAPHYLACTIC SHOCK
     Route: 065
     Dates: start: 20080425, end: 20080425
  3. SYNTHROID [Concomitant]
     Indication: HYPOTHYROIDISM
     Dosage: DOSE UNIT:
     Route: 048
     Dates: start: 19840101

REACTIONS (7)
  - ANAPHYLACTIC SHOCK [None]
  - CONVULSION [None]
  - INJECTION SITE IRRITATION [None]
  - MYOCARDIAL INFARCTION [None]
  - PNEUMONIA ASPIRATION [None]
  - THROMBOPHLEBITIS SUPERFICIAL [None]
  - TONGUE DISCOLOURATION [None]
